FAERS Safety Report 17064237 (Version 1)
Quarter: 2019Q4

REPORT INFORMATION
  Report Type: Spontaneous
  Country: US (occurrence: US)
  Receive Date: 20191122
  Receipt Date: 20191122
  Transmission Date: 20200122
  Serious: Yes (Hospitalization, Other)
  Sender: FDA-Public Use
  Company Number: US-MYLANLABS-2019M1113178

PATIENT
  Age: 23 Year
  Sex: Female

DRUGS (2)
  1. LAMOTRIGINE. [Interacting]
     Active Substance: LAMOTRIGINE
     Indication: EPILEPSY
     Dosage: EVERY OTHER DAY
     Route: 065
  2. VALPROIC ACID. [Suspect]
     Active Substance: VALPROIC ACID
     Indication: EPILEPSY
     Dosage: UNK
     Route: 065

REACTIONS (3)
  - Anticonvulsant drug level increased [Unknown]
  - Haemophagocytic lymphohistiocytosis [Recovering/Resolving]
  - Labelled drug-drug interaction medication error [Unknown]
